FAERS Safety Report 25907012 (Version 2)
Quarter: 2025Q4

REPORT INFORMATION
  Report Type: Report from Study
  Country: RS (occurrence: RS)
  Receive Date: 20251010
  Receipt Date: 20251013
  Transmission Date: 20260117
  Serious: Yes (Hospitalization, Other)
  Sender: PFIZER
  Company Number: RS-PFIZER INC-PV202400083332

PATIENT
  Age: 48 Year
  Sex: Female

DRUGS (2)
  1. ELRANATAMAB [Suspect]
     Active Substance: ELRANATAMAB
     Indication: Plasma cell myeloma
     Dosage: 1ST CYCLE, CYCLIC
     Dates: start: 20240226
  2. ELRANATAMAB [Suspect]
     Active Substance: ELRANATAMAB
     Dosage: UNK, CYCLIC
     Dates: start: 20240605

REACTIONS (3)
  - Thrombocytopenia [Unknown]
  - Pancreatitis acute [Recovered/Resolved]
  - Hypercalcaemia [Recovered/Resolved]

NARRATIVE: CASE EVENT DATE: 20240312
